FAERS Safety Report 12689456 (Version 1)
Quarter: 2016Q3

REPORT INFORMATION
  Report Type: Spontaneous
  Country: US (occurrence: None)
  Receive Date: 20160825
  Receipt Date: 20160825
  Transmission Date: 20161109
  Serious: Yes (Other)
  Sender: FDA-Public Use
  Company Number: None

PATIENT
  Age: 6 Month
  Sex: Male
  Weight: 110.68 kg

DRUGS (1)
  1. SINUS RELIEF (OXYMETAZOLINE HYDROCHLORIDE) [Suspect]
     Active Substance: OXYMETAZOLINE HYDROCHLORIDE
     Indication: DYSPNOEA
     Route: 055
     Dates: start: 20160823

REACTIONS (3)
  - Nasal discomfort [None]
  - Pain [None]
  - Headache [None]

NARRATIVE: CASE EVENT DATE: 20160823
